FAERS Safety Report 21721143 (Version 1)
Quarter: 2022Q4

REPORT INFORMATION
  Report Type: Spontaneous
  Country: US (occurrence: US)
  Receive Date: 20221213
  Receipt Date: 20221213
  Transmission Date: 20230113
  Serious: No
  Sender: FDA-Public Use
  Company Number: US-SA-SAC20221209000145

PATIENT
  Age: 70 Year
  Sex: Female

DRUGS (1)
  1. TAXOTERE [Suspect]
     Active Substance: DOCETAXEL

REACTIONS (23)
  - Migraine [Unknown]
  - Chills [Unknown]
  - Cardiac disorder [Unknown]
  - Regurgitation [Unknown]
  - Stress [Unknown]
  - Decreased interest [Unknown]
  - Pain [Unknown]
  - Glucose tolerance impaired [Unknown]
  - Influenza [Unknown]
  - Dyspnoea [Unknown]
  - Heart rate increased [Unknown]
  - Asthenia [Unknown]
  - Chest pain [Unknown]
  - Palpitations [Unknown]
  - Pain in extremity [Unknown]
  - Headache [Unknown]
  - Myalgia [Unknown]
  - Arthralgia [Unknown]
  - Nausea [Unknown]
  - Fatigue [Unknown]
  - Decreased appetite [Unknown]
  - Diarrhoea [Unknown]
  - Tinnitus [Unknown]
